FAERS Safety Report 9675019 (Version 1)
Quarter: 2013Q4

REPORT INFORMATION
  Report Type: Spontaneous
  Country: US (occurrence: None)
  Receive Date: 20131106
  Receipt Date: 20131106
  Transmission Date: 20140711
  Serious: Yes (Life-Threatening, Hospitalization)
  Sender: FDA-Public Use
  Company Number: None

PATIENT
  Age: 78 Year
  Sex: Female
  Weight: 54.2 kg

DRUGS (8)
  1. RIVAROXABAN [Suspect]
     Indication: CEREBROVASCULAR ACCIDENT PROPHYLAXIS
     Route: 048
     Dates: end: 20131018
  2. RIVAROXABAN [Suspect]
     Indication: ATRIAL FIBRILLATION
     Route: 048
     Dates: end: 20131018
  3. AMIODARONE [Concomitant]
  4. COREG [Concomitant]
  5. PROTONIX [Concomitant]
  6. BIDIL [Concomitant]
  7. ALPRAZOLAM [Concomitant]
  8. RIVARAOXABAN [Concomitant]

REACTIONS (3)
  - Basal ganglia haemorrhage [None]
  - Intraventricular haemorrhage [None]
  - Blood pressure systolic increased [None]
